FAERS Safety Report 6540632-8 (Version None)
Quarter: 2010Q1

REPORT INFORMATION
  Report Type: 
  Country: None (occurrence: None)
  Receive Date: 20100118
  Receipt Date: 20100111
  Transmission Date: 20100710
  Serious: Yes (Other)
  Sender: FDA-Public Use
  Company Number: CN-ROCHE-636784

PATIENT
  Age: 53 Year
  Sex: Male
  Weight: 65 kg

DRUGS (7)
  1. CELLCEPT [Suspect]
     Indication: LIVER TRANSPLANT
     Route: 048
  2. XELODA [Suspect]
     Indication: NEOPLASM PROPHYLAXIS
     Route: 048
     Dates: start: 20090405, end: 20090525
  3. XELODA [Suspect]
     Dosage: 2 WEEKS OF THE DRUG FOLLOWED BY 1 WEEK OFF.
     Route: 048
     Dates: start: 20090625
  4. THALIDOMIDE [Suspect]
     Indication: NEOPLASM PROPHYLAXIS
     Route: 048
  5. PROGRAF [Concomitant]
     Indication: LIVER TRANSPLANT
     Route: 048
  6. VITAMIN B6 [Concomitant]
     Indication: PROPHYLAXIS
     Route: 048
     Dates: start: 20090405
  7. UNSPECIFIED DRUG [Concomitant]
     Indication: LIVER TRANSPLANT
     Route: 048

REACTIONS (11)
  - BLOOD BILIRUBIN INCREASED [None]
  - DACTYLITIS [None]
  - DRY MOUTH [None]
  - DRY SKIN [None]
  - LOCALISED INFECTION [None]
  - NASAL DRYNESS [None]
  - ONYCHOLYSIS [None]
  - SKIN DISCOLOURATION [None]
  - SKIN EXFOLIATION [None]
  - SKIN FISSURES [None]
  - WHITE BLOOD CELL COUNT DECREASED [None]
